FAERS Safety Report 16464790 (Version 1)
Quarter: 2019Q2

REPORT INFORMATION
  Report Type: Spontaneous
  Country: US (occurrence: US)
  Receive Date: 20190621
  Receipt Date: 20190621
  Transmission Date: 20190711
  Serious: Yes (Hospitalization)
  Sender: FDA-Public Use
  Company Number: PHEH2019US025623

PATIENT
  Sex: Male

DRUGS (3)
  1. AMANTADINE. [Suspect]
     Active Substance: AMANTADINE HYDROCHLORIDE
     Indication: DOPAMINERGIC DRUG THERAPY
     Dosage: UNK
     Route: 065
  2. PRISTIQ EXTENDED-RELEASE [Suspect]
     Active Substance: DESVENLAFAXINE SUCCINATE
     Indication: DOPAMINERGIC DRUG THERAPY
     Dosage: 1 DF, QD
     Route: 048
     Dates: start: 20190418, end: 20190530
  3. PRISTIQ EXTENDED-RELEASE [Suspect]
     Active Substance: DESVENLAFAXINE SUCCINATE
     Indication: APHASIA

REACTIONS (4)
  - Post stroke epilepsy [Recovered/Resolved with Sequelae]
  - Feeling abnormal [Recovered/Resolved with Sequelae]
  - Sedation [Recovered/Resolved with Sequelae]
  - Clonic convulsion [Recovered/Resolved with Sequelae]

NARRATIVE: CASE EVENT DATE: 20190530
